FAERS Safety Report 7483582-5 (Version None)
Quarter: 2011Q2

REPORT INFORMATION
  Report Type: 
  Country: None (occurrence: None)
  Receive Date: 20110517
  Receipt Date: 20110510
  Transmission Date: 20111010
  Serious: No
  Sender: FDA-Public Use
  Company Number: US-PFIZER INC-2011100657

PATIENT
  Sex: Male
  Weight: 74.83 kg

DRUGS (1)
  1. ADVIL LIQUI-GELS [Suspect]
     Indication: HEADACHE
     Dosage: 400 MG, 1X/DAY
     Route: 048
     Dates: start: 20110501, end: 20110508

REACTIONS (1)
  - CHEST PAIN [None]
